FAERS Safety Report 16057843 (Version 9)
Quarter: 2021Q4

REPORT INFORMATION
  Report Type: Report from Study
  Country: GB (occurrence: GB)
  Receive Date: 20190311
  Receipt Date: 20211102
  Transmission Date: 20220303
  Serious: Yes (Hospitalization, Other)
  Sender: FDA-Public Use
  Company Number: GB-ROCHE-1657697

PATIENT
  Age: 75 Year
  Sex: Female

DRUGS (47)
  1. DOCETAXEL [Suspect]
     Active Substance: DOCETAXEL
     Indication: Breast cancer
     Dosage: 170 MG, EVERY 3 WEEKS
     Route: 042
     Dates: start: 20150721, end: 20150807
  2. TRASTUZUMAB [Suspect]
     Active Substance: TRASTUZUMAB
     Indication: Breast cancer
     Dosage: 600 MG, EVERY 3 WEEKS
     Route: 058
     Dates: start: 20150721, end: 20151126
  3. TRASTUZUMAB [Suspect]
     Active Substance: TRASTUZUMAB
     Dosage: 1200 MG, EVERY 3 WEEKS
     Route: 058
     Dates: start: 20151126, end: 20151126
  4. TRASTUZUMAB [Suspect]
     Active Substance: TRASTUZUMAB
     Dosage: 1200 MG, EVERY 3 WEEKS
     Route: 058
     Dates: start: 20210721
  5. TRASTUZUMAB [Suspect]
     Active Substance: TRASTUZUMAB
     Dosage: 600 MG, ALTERNATE DAY
     Route: 058
  6. ANASTROZOLE [Suspect]
     Active Substance: ANASTROZOLE
     Indication: Breast cancer
     Dosage: 1 MG, 1X/DAY
     Route: 048
     Dates: start: 20160115
  7. PERTUZUMAB [Suspect]
     Active Substance: PERTUZUMAB
     Indication: Breast cancer
     Dosage: 420 MG, EVERY 3 WEEKS
     Route: 042
     Dates: start: 20150721, end: 20151126
  8. HYALURONIDASE [Suspect]
     Active Substance: HYALURONIDASE
     Indication: Breast cancer
     Dosage: 600 MG, EVERY 3 WEEKS
     Route: 058
     Dates: start: 20150721, end: 20151126
  9. FUROSEMIDE [Concomitant]
     Active Substance: FUROSEMIDE
     Indication: Dyspnoea
     Dosage: 40 MG, UNK
     Route: 048
     Dates: start: 20151211
  10. FUROSEMIDE [Concomitant]
     Active Substance: FUROSEMIDE
     Dosage: 50 MG, 2X/DAY
     Route: 042
     Dates: start: 20151206, end: 20151207
  11. DIGOXIN [Concomitant]
     Active Substance: DIGOXIN
     Dosage: 62.5 UG, UNK
     Route: 048
     Dates: start: 20160121
  12. DIGOXIN [Concomitant]
     Active Substance: DIGOXIN
     Dosage: 500 MG, AS NEEDED
     Route: 048
     Dates: start: 201701
  13. ACETAMINOPHEN [Concomitant]
     Active Substance: ACETAMINOPHEN
     Indication: Premedication
     Dosage: 1 G, EVERY 3 WEEKS
     Route: 048
     Dates: start: 20150721
  14. ACETAMINOPHEN [Concomitant]
     Active Substance: ACETAMINOPHEN
     Dosage: 1 G, EVERY 3 WEEKS
     Route: 048
     Dates: start: 20160531
  15. RAMIPRIL [Concomitant]
     Active Substance: RAMIPRIL
     Indication: Prophylaxis
     Dosage: (UNKNOWN UNIT), 1X/DAY
     Route: 048
     Dates: start: 20160415, end: 201605
  16. RAMIPRIL [Concomitant]
     Active Substance: RAMIPRIL
     Dosage: 3.75 MG, 1X/DAY
     Route: 048
     Dates: start: 201605, end: 201606
  17. RAMIPRIL [Concomitant]
     Active Substance: RAMIPRIL
     Dosage: 5 MG, 2X/DAY
     Route: 048
     Dates: start: 2016
  18. BISOPROLOL [Concomitant]
     Active Substance: BISOPROLOL
     Indication: Ejection fraction decreased
     Dosage: 1.25 MG, UNK
     Route: 048
     Dates: start: 20160121
  19. BISOPROLOL [Concomitant]
     Active Substance: BISOPROLOL
     Indication: Prophylaxis
     Dosage: 2.5 MG, UNK
     Route: 048
     Dates: start: 20160415
  20. BISOPROLOL [Concomitant]
     Active Substance: BISOPROLOL
     Dosage: 2.5 MG, 1X/DAY
     Route: 048
     Dates: start: 201603
  21. CYCLOPENTOLATE HYDROCHLORIDE [Concomitant]
     Active Substance: CYCLOPENTOLATE HYDROCHLORIDE
     Dosage: 1 GTT, UNK
     Route: 047
     Dates: start: 20160601, end: 20160610
  22. COCODAMOL [Concomitant]
     Active Substance: ACETAMINOPHEN\CODEINE PHOSPHATE
     Dosage: 500 MG, AS NEEDED
     Route: 048
     Dates: start: 20150720
  23. ATORVASTATIN [Concomitant]
     Active Substance: ATORVASTATIN
     Indication: Prophylaxis
     Dosage: 20 MG, 1X/DAY
     Route: 048
  24. ATORVASTATIN [Concomitant]
     Active Substance: ATORVASTATIN
     Dosage: 20 MG, DAILY
     Dates: start: 20161130
  25. DEXAMETHASONE [Concomitant]
     Active Substance: DEXAMETHASONE
     Indication: Prophylaxis
     Dosage: 8 MG, 2X/DAY (BD  FOR  3 DAYS)
     Route: 048
     Dates: start: 20150721, end: 20150722
  26. DALTEPARIN [Concomitant]
     Active Substance: DALTEPARIN
     Indication: Pleural effusion
     Dosage: UNK IU
     Route: 058
     Dates: start: 20151206, end: 20151206
  27. IOPIDINE [APRACLONIDINE] [Concomitant]
     Dosage: 1 GTT, UNK
     Route: 047
     Dates: start: 20160601, end: 20160629
  28. CLOPIDOGREL [Concomitant]
     Active Substance: CLOPIDOGREL BISULFATE
     Indication: Prophylaxis
     Dosage: 75 MG, 1X/DAY
     Route: 048
  29. CLOPIDOGREL [Concomitant]
     Active Substance: CLOPIDOGREL BISULFATE
     Dosage: 75 MG, 1X/DAY
     Route: 048
     Dates: start: 20161130
  30. TOBRADEX [Concomitant]
     Active Substance: DEXAMETHASONE\TOBRAMYCIN
     Dosage: 1 DROP
     Route: 047
     Dates: start: 20160601
  31. FENTANYL [Concomitant]
     Active Substance: FENTANYL
     Dosage: 200 UG, UNK
     Route: 042
     Dates: start: 20160531, end: 20160601
  32. DIAMOX SEQUELS [Concomitant]
     Active Substance: ACETAZOLAMIDE
     Dosage: 1 GTT, UNK
     Route: 047
     Dates: start: 20160601, end: 20160604
  33. LISINOPRIL [Concomitant]
     Active Substance: LISINOPRIL
     Indication: Dyspnoea
     Dosage: 5 MG, UNK
     Route: 048
     Dates: start: 20151218, end: 20160121
  34. LISINOPRIL [Concomitant]
     Active Substance: LISINOPRIL
     Dosage: 2.5 MG, UNK
     Route: 048
     Dates: start: 20160121, end: 20160415
  35. ONDANSETRON [Concomitant]
     Active Substance: ONDANSETRON
     Indication: Prophylaxis
     Dosage: 8 MG, 2X/DAY(TWICE DAILY FOR 3 DAYS POST CHEMOTHERAPY)
     Route: 048
     Dates: start: 20150721, end: 20150722
  36. FELODIPINE [Concomitant]
     Active Substance: FELODIPINE
     Dosage: 2.5 MG, 1X/DAY
     Route: 048
     Dates: start: 20161030
  37. CHLORPHENIRAMINE MALEATE [Concomitant]
     Active Substance: CHLORPHENIRAMINE MALEATE
     Indication: Premedication
     Dosage: 10 MG, EVERY 3 WEEKS
     Route: 042
     Dates: start: 20150721, end: 20151126
  38. METOCLOPRAMIDE [Concomitant]
     Active Substance: METOCLOPRAMIDE
     Indication: Prophylaxis
     Dosage: 10 MG, AS NEEDED
     Route: 048
     Dates: start: 20150721, end: 20150727
  39. CANDESARTAN [Concomitant]
     Active Substance: CANDESARTAN
     Dosage: 32 MG, 1X/DAY
     Route: 048
     Dates: start: 2013
  40. INDAPAMIDE [Concomitant]
     Active Substance: INDAPAMIDE
     Indication: Prophylaxis
     Dosage: 2.5 MG, 1X/DAY
     Route: 048
     Dates: start: 2016
  41. CALCIUM CARBONATE [Concomitant]
     Active Substance: CALCIUM CARBONATE
     Indication: Osteopenia
     Dosage: 500 MG, 2X/DAY
     Route: 048
     Dates: start: 20180205
  42. CO-DYDRAMOL [Concomitant]
     Active Substance: ACETAMINOPHEN\DIHYDROCODEINE
     Indication: Back pain
     Dosage: 500 MG, AS NEEDED
     Route: 048
     Dates: start: 201701
  43. PREDNISOLONE [Concomitant]
     Active Substance: PREDNISOLONE
     Dosage: 40 MG, DAILY
     Route: 048
     Dates: start: 20160601, end: 20160606
  44. ALENDRONIC ACID [Concomitant]
     Active Substance: ALENDRONIC ACID
     Indication: Osteopenia
     Dosage: 70 MG, WEEKLY
     Route: 048
     Dates: start: 20180205
  45. LIDOCAINE [Concomitant]
     Active Substance: LIDOCAINE
     Indication: Pain
     Dosage: UNK, AS NEEDED
     Route: 062
     Dates: start: 20190405
  46. TRIMETHOPRIM [Concomitant]
     Active Substance: TRIMETHOPRIM
     Indication: Urinary tract infection
     Dosage: 200 MG, 1X/DAY
     Route: 048
     Dates: start: 20181019, end: 20181023
  47. ORAMORPH SR SUSTAINED RELEASE [Concomitant]
     Active Substance: MORPHINE SULFATE
     Indication: Pain
     Dosage: 5 MG, AS NEEDED
     Route: 048
     Dates: start: 20190405

REACTIONS (19)
  - Alopecia [Recovered/Resolved]
  - Constipation [Recovered/Resolved]
  - Diarrhoea [Recovered/Resolved]
  - Ejection fraction decreased [Recovered/Resolved]
  - Dizziness [Recovered/Resolved]
  - Nausea [Recovered/Resolved]
  - Fatigue [Not Recovered/Not Resolved]
  - Weight decreased [Recovered/Resolved]
  - Diarrhoea [Recovered/Resolved]
  - Retinal detachment [Recovered/Resolved with Sequelae]
  - Pleural effusion [Recovered/Resolved]
  - Back pain [Recovered/Resolved]
  - Presyncope [Recovered/Resolved]
  - Rectal haemorrhage [Recovered/Resolved]
  - Haemorrhoids [Recovered/Resolved with Sequelae]
  - Osteopenia [Not Recovered/Not Resolved]
  - Back pain [Recovered/Resolved]
  - Dyspnoea [Recovered/Resolved]
  - Condition aggravated [Recovered/Resolved]

NARRATIVE: CASE EVENT DATE: 20150721
